FAERS Safety Report 9589803 (Version 1)
Quarter: 2013Q4

REPORT INFORMATION
  Report Type: Spontaneous
  Country: US (occurrence: US)
  Receive Date: 20131003
  Receipt Date: 20131003
  Transmission Date: 20140711
  Serious: No
  Sender: FDA-Public Use
  Company Number: US-AMGEN-USASP2012072927

PATIENT
  Sex: Female
  Weight: 88.44 kg

DRUGS (9)
  1. ENBREL [Suspect]
     Indication: PSORIATIC ARTHROPATHY
     Dosage: 50 MG, QWK
     Route: 058
  2. PLAQUENIL                          /00072602/ [Concomitant]
     Dosage: 200 MG, UNK
  3. RELAFEN [Concomitant]
     Dosage: 750 MG, UNK
  4. ULTRAM [Concomitant]
     Dosage: 200 MG, UNK
  5. LUTEIN                             /01638501/ [Concomitant]
     Dosage: 20 MG, UNK
  6. FISH OIL [Concomitant]
     Dosage: UNK
  7. CALCIUM D                          /00944201/ [Concomitant]
     Dosage: UNK
  8. VITAMIN D3 [Concomitant]
     Dosage: 1000 UNIT, UNK
  9. MULTIVITAMINS, PLAIN [Concomitant]
     Dosage: UNK

REACTIONS (2)
  - Injection site haemorrhage [Unknown]
  - Injection site bruising [Unknown]
